FAERS Safety Report 9059777 (Version 1)
Quarter: 2013Q1

REPORT INFORMATION
  Report Type: Spontaneous
  Country: US (occurrence: None)
  Receive Date: 20130206
  Receipt Date: 20130206
  Transmission Date: 20140127
  Serious: Yes (Life-Threatening, Hospitalization)
  Sender: FDA-Public Use
  Company Number: None

PATIENT
  Age: 70 Year
  Sex: Female
  Weight: 44.1 kg

DRUGS (2)
  1. ERIBULIN [Suspect]
     Route: 042
     Dates: start: 20110818, end: 20110826
  2. PACLITAXEL [Suspect]
     Route: 042
     Dates: start: 20100701, end: 20110811

REACTIONS (4)
  - VIIth nerve paralysis [None]
  - Speech disorder [None]
  - Muscular weakness [None]
  - Dysphagia [None]
